FAERS Safety Report 7913875 (Version 4)
Quarter: 2013Q3

REPORT INFORMATION
  Report Type: Report from Study
  Country: UG (occurrence: UG)
  Receive Date: 20110425
  Receipt Date: 20130906
  Transmission Date: 20140515
  Serious: Yes (Death, Life-Threatening, Hospitalization)
  Sender: FDA-Public Use
  Company Number: UG-ABBOTT-11P-165-0720753-00

PATIENT
  Age: 33 Year
  Sex: Female

DRUGS (4)
  1. ALUVIA TABLETS [Suspect]
     Indication: HIV INFECTION
     Route: 048
     Dates: start: 20110217
  2. TENOFOVIR/LAMIVUDINE [Concomitant]
     Indication: PRODUCT USED FOR UNKNOWN INDICATION
     Dates: start: 20110217
  3. SEPTRIN [Concomitant]
     Indication: PRODUCT USED FOR UNKNOWN INDICATION
     Dates: start: 20081010
  4. LAMIVUDINE [Concomitant]
     Indication: PRODUCT USED FOR UNKNOWN INDICATION
     Dates: start: 20110217

REACTIONS (19)
  - Thrombotic thrombocytopenic purpura [Fatal]
  - Anaemia [Fatal]
  - Diarrhoea [Unknown]
  - Decreased appetite [Unknown]
  - Vomiting [Unknown]
  - Asthenia [Unknown]
  - Dizziness [Unknown]
  - Palpitations [Unknown]
  - Tachycardia [Unknown]
  - Abdominal pain [Unknown]
  - Chest pain [Unknown]
  - Dysuria [Unknown]
  - Pallor [Unknown]
  - Dehydration [Unknown]
  - Abdominal tenderness [Unknown]
  - Abdominal tenderness [Unknown]
  - Confusional state [Unknown]
  - Loss of consciousness [Unknown]
  - Pyrexia [Unknown]
